FAERS Safety Report 23795593 (Version 8)
Quarter: 2024Q3

REPORT INFORMATION
  Report Type: Spontaneous
  Country: US (occurrence: US)
  Receive Date: 20240429
  Receipt Date: 20240920
  Transmission Date: 20241017
  Serious: No
  Sender: PFIZER
  Company Number: US-PFIZER INC-202400093051

PATIENT
  Age: 9 Year
  Sex: Female
  Weight: 18.14 kg

DRUGS (1)
  1. GENOTROPIN [Suspect]
     Active Substance: SOMATROPIN
     Indication: Short stature
     Dosage: 0.5 MG, 1X/DAY
     Route: 058
     Dates: start: 20240402

REACTIONS (3)
  - Device issue [Unknown]
  - Device leakage [Unknown]
  - Injection site haemorrhage [Unknown]
